FAERS Safety Report 5784733-0 (Version None)
Quarter: 2008Q2

REPORT INFORMATION
  Report Type: 
  Country: None (occurrence: None)
  Receive Date: 20080605
  Receipt Date: 20080417
  Transmission Date: 20081010
  Serious: No
  Sender: FDA-Public Use
  Company Number: A0722497A

PATIENT
  Weight: 79 kg

DRUGS (1)
  1. ALLI [Suspect]
     Route: 048

REACTIONS (8)
  - BINGE EATING [None]
  - DRUG INEFFECTIVE [None]
  - FLATULENCE [None]
  - FREQUENT BOWEL MOVEMENTS [None]
  - GASTROINTESTINAL DISORDER [None]
  - HUNGER [None]
  - RECTAL DISCHARGE [None]
  - WEIGHT INCREASED [None]
